FAERS Safety Report 15775376 (Version 1)
Quarter: 2018Q4

REPORT INFORMATION
  Report Type: Spontaneous
  Country: US (occurrence: US)
  Receive Date: 20181231
  Receipt Date: 20181231
  Transmission Date: 20190205
  Serious: Yes (Hospitalization, Other)
  Sender: FDA-Public Use
  Company Number: US-ASTELLAS-2018US054873

PATIENT
  Age: 20 Year
  Sex: Female

DRUGS (2)
  1. TACROLIMUS. [Suspect]
     Active Substance: TACROLIMUS
     Indication: HEART TRANSPLANT
     Dosage: UNK UNK, UNKNOWN FREQ.
     Route: 065
  2. MYCOPHENOLATE MOFETIL. [Concomitant]
     Active Substance: MYCOPHENOLATE MOFETIL
     Indication: HEART TRANSPLANT
     Dosage: UNK UNK, UNKNOWN FREQ.
     Route: 065

REACTIONS (10)
  - Hydronephrosis [Recovered/Resolved]
  - Ureaplasma infection [Recovered/Resolved]
  - Focal segmental glomerulosclerosis [Recovered/Resolved]
  - Pyelonephritis [Recovered/Resolved]
  - Streptococcal urinary tract infection [Recovered/Resolved]
  - Post transplant lymphoproliferative disorder [Recovered/Resolved]
  - Seizure [Recovered/Resolved]
  - Mental status changes [Recovered/Resolved]
  - Kidney fibrosis [Recovered/Resolved]
  - Renal failure [Recovered/Resolved]
